FAERS Safety Report 6844502-7 (Version None)
Quarter: 2010Q3

REPORT INFORMATION
  Report Type: 
  Country: None (occurrence: None)
  Receive Date: 20100713
  Receipt Date: 20100628
  Transmission Date: 20110219
  Serious: Yes (Death)
  Sender: FDA-Public Use
  Company Number: AE 2010-134

PATIENT
  Age: 88 Year
  Sex: Female

DRUGS (15)
  1. FAZACLO ODT [Suspect]
     Indication: PSYCHOTIC DISORDER
     Dosage: 25 MG DAILY PO
     Route: 048
     Dates: start: 20100311, end: 20100627
  2. SYNTHROID [Concomitant]
  3. PRINIVIL [Concomitant]
  4. TOPROL-XL [Concomitant]
  5. OSCAL [Concomitant]
  6. MIRALAX [Concomitant]
  7. AGGRENOX [Concomitant]
  8. FOSAMAX [Concomitant]
  9. ATIVAN [Concomitant]
  10. CRANBERRY TABS [Concomitant]
  11. IRON [Concomitant]
  12. COLACE [Concomitant]
  13. VICODIN [Concomitant]
  14. FENTANYL-75 [Concomitant]
  15. DERMEROL [Concomitant]

REACTIONS (1)
  - GENERAL PHYSICAL HEALTH DETERIORATION [None]
